FAERS Safety Report 10417279 (Version 2)
Quarter: 2014Q3

REPORT INFORMATION
  Report Type: Spontaneous
  Country: US (occurrence: US)
  Receive Date: 20140828
  Receipt Date: 20140909
  Transmission Date: 20150326
  Serious: Yes (Death, Hospitalization)
  Sender: FDA-Public Use
  Company Number: US-B.I. PHARMACEUTICALS,INC./RIDGEFIELD-2014-BI-39933BP

PATIENT
  Age: 67 Year
  Sex: Female

DRUGS (8)
  1. DOXAZOSIN [Concomitant]
     Active Substance: DOXAZOSIN\DOXAZOSIN MESYLATE
     Indication: URINARY INCONTINENCE
     Dosage: 2 MG
     Route: 048
     Dates: start: 2004
  2. BETASERON [Concomitant]
     Active Substance: INTERFERON BETA-1B
     Indication: MULTIPLE SCLEROSIS
     Dosage: FORMULATION:INJECTIONS
     Route: 030
     Dates: start: 2004
  3. FLUTICASONE [Concomitant]
     Active Substance: FLUTICASONE\FLUTICASONE PROPIONATE
     Indication: SEASONAL ALLERGY
     Dosage: FORMULATION :NASAL SPRAY DOSE PER APPLICATION: 2 SPRAYS EACH NOSTRIL; DAILY DOSE: 4 SPRAYS
     Route: 045
     Dates: start: 2004
  4. GABAPENTIN. [Concomitant]
     Active Substance: GABAPENTIN
     Indication: PAIN IN EXTREMITY
     Dosage: 300 MG
     Route: 048
     Dates: start: 201405
  5. PRADAXA [Suspect]
     Active Substance: DABIGATRAN ETEXILATE MESYLATE
     Indication: THROMBOSIS PROPHYLAXIS
     Dosage: 300 MG
     Route: 048
     Dates: end: 20140818
  6. BACLOFEN. [Concomitant]
     Active Substance: BACLOFEN
     Indication: MUSCLE SPASTICITY
     Dosage: 60 MG
     Route: 048
     Dates: start: 1980
  7. OXYBUTYNIN [Concomitant]
     Active Substance: OXYBUTYNIN
     Indication: URINARY INCONTINENCE
     Dosage: 10 MG
     Route: 048
     Dates: start: 2004
  8. NUVIGIL [Concomitant]
     Active Substance: ARMODAFINIL
     Indication: SUPPLEMENTATION THERAPY
     Dosage: 250 MG
     Route: 048
     Dates: start: 201404

REACTIONS (3)
  - Urinary tract infection [Recovered/Resolved]
  - Death [Fatal]
  - Hypoxia [Recovered/Resolved]

NARRATIVE: CASE EVENT DATE: 20140804
